FAERS Safety Report 9067346 (Version 1)
Quarter: 2013Q1

REPORT INFORMATION
  Report Type: Spontaneous
  Country: US (occurrence: US)
  Receive Date: 20130202
  Receipt Date: 20130202
  Transmission Date: 20140127
  Serious: Yes (Hospitalization, Other)
  Sender: FDA-Public Use
  Company Number: US-AMGEN-USASP2012077530

PATIENT
  Age: 53 Year
  Sex: Male
  Weight: 61.22 kg

DRUGS (19)
  1. ENBREL [Suspect]
     Indication: RHEUMATOID ARTHRITIS
     Dosage: 50 MG, EVERY WEEK
     Route: 058
     Dates: start: 20120323, end: 201208
  2. PREDNISONE [Concomitant]
     Dosage: 5 MG, 1 TABLET DAILY
     Route: 048
     Dates: start: 20120416, end: 20121214
  3. ARAVA [Concomitant]
     Dosage: 20 MG, 1 TABLET BY MOUTH EVERY DAY
     Route: 048
     Dates: start: 20110712, end: 20120905
  4. ACETAMINOPHEN W/HYDROCODONE [Concomitant]
     Dosage: 1 TABLET BY MOUTH THREE TIMES DAILY AS NEEDED
     Dates: start: 20120412, end: 20120507
  5. NAPROXEN [Concomitant]
     Dosage: 500 MG,1 TABLET BY MOUTH EVERY DAY
     Route: 048
  6. HUMULIN [Concomitant]
     Dosage: 10 UNIT, AM AND 10 UNIT PM
     Route: 058
     Dates: start: 20111020
  7. INSULIN [Concomitant]
     Dosage: UNK UNK, BID
     Dates: start: 20111013
  8. ASPIRIN [Concomitant]
     Dosage: 81 MG, 1 TABLET DAILY
     Route: 048
  9. CLOPIDOGREL BISULFATE [Concomitant]
     Dosage: 75 MG, 1 TABLET DAILY
     Route: 048
  10. NOVOLOG [Concomitant]
     Dosage: 100 UNIT/ML
  11. METFORMIN HCL [Concomitant]
     Dosage: 500 MG, 2 AM AND 2 WITH SUPPER
     Route: 048
     Dates: start: 20111006
  12. FAMOTIDINE [Concomitant]
     Dosage: 20 MG, 1 TABLET TWICE DAILY
     Route: 048
     Dates: end: 20120905
  13. LISINOPRIL [Concomitant]
     Dosage: 2.5 MG, 1 TABLET DAILY
     Route: 048
     Dates: end: 20120905
  14. METOPROLOL TARTRATE [Concomitant]
     Dosage: 25 MG, 1/2 TABLET 2X A DAY
     Route: 048
     Dates: end: 20120905
  15. SIMVASTATIN [Concomitant]
     Dosage: 40 MG, 1 TABLET EVERY EVENING
     Route: 048
     Dates: end: 20120905
  16. AMARYL [Concomitant]
     Dosage: 4 MG, 1 TABLET BY MOUTH EVERY DAY
     Dates: start: 20111006, end: 20120905
  17. ORENCIA [Concomitant]
     Dosage: UNK
  18. REMICADE [Concomitant]
     Dosage: UNK
  19. NITROGLYCERIN [Concomitant]
     Dosage: 0.4 MG, 1 TAB EVERY 5 MIN AS NEEDED, UPTO 3 PER EPISODE
     Route: 060
     Dates: start: 20100303

REACTIONS (16)
  - Splenomegaly [Recovered/Resolved]
  - Myocardial infarction [Recovered/Resolved]
  - Chronic lymphocytic leukaemia [Unknown]
  - Leukocytosis [Unknown]
  - Thrombocytosis [Unknown]
  - Histoplasmosis disseminated [Unknown]
  - Pneumonia [Unknown]
  - Chest pain [Unknown]
  - Dry skin [Unknown]
  - Joint swelling [Unknown]
  - Tenderness [Unknown]
  - Back pain [Unknown]
  - Injection site pain [Unknown]
  - Injection site erythema [Unknown]
  - Rectal haemorrhage [Unknown]
  - Haemorrhoids [Unknown]
